FAERS Safety Report 6898722-6 (Version None)
Quarter: 2010Q3

REPORT INFORMATION
  Report Type: 
  Country: None (occurrence: None)
  Receive Date: 20100802
  Receipt Date: 20071116
  Transmission Date: 20110219
  Serious: No
  Sender: FDA-Public Use
  Company Number: US-PFIZER INC-2007078826

PATIENT
  Sex: Female
  Weight: 47.6 kg

DRUGS (3)
  1. LYRICA [Suspect]
     Indication: NEURALGIA
     Dates: start: 20070912
  2. CELEBREX [Concomitant]
  3. CYMBALTA [Concomitant]

REACTIONS (1)
  - ORAL HERPES [None]
